FAERS Safety Report 5078589-1 (Version None)
Quarter: 2006Q3

REPORT INFORMATION
  Report Type: 
  Country: None (occurrence: None)
  Receive Date: 20060809
  Receipt Date: 20060809
  Transmission Date: 20061208
  Serious: Yes (Life-Threatening, Hospitalization)
  Sender: FDA-Public Use
  Company Number: None

PATIENT
  Sex: Male

DRUGS (1)
  1. ALLOPURINOL [Suspect]
     Indication: GOUT
     Dosage: 200 MG  DAILY PO
     Route: 048
     Dates: start: 20050915, end: 20051007

REACTIONS (12)
  - AGEUSIA [None]
  - ANGIONEUROTIC OEDEMA [None]
  - DRUG HYPERSENSITIVITY [None]
  - DYSPHAGIA [None]
  - DYSPNOEA EXERTIONAL [None]
  - FOOD INTOLERANCE [None]
  - GENERALISED ERYTHEMA [None]
  - NASOPHARYNGITIS [None]
  - PRURITUS [None]
  - SKIN EXFOLIATION [None]
  - SKIN REACTION [None]
  - SWELLING FACE [None]
